FAERS Safety Report 4952208-4 (Version None)
Quarter: 2006Q1

REPORT INFORMATION
  Report Type: 
  Country: None (occurrence: None)
  Receive Date: 20060317
  Receipt Date: 20060309
  Transmission Date: 20060701
  Serious: Yes (Life-Threatening)
  Sender: FDA-Public Use
  Company Number: 2006-01-0579

PATIENT
  Age: 32 Year
  Sex: Male

DRUGS (1)
  1. TEMOZOLOMIDE CAPSULES [Suspect]
     Dosage: ORAL
     Route: 048

REACTIONS (5)
  - ECCHYMOSIS [None]
  - EPISTAXIS [None]
  - HAEMOLYTIC URAEMIC SYNDROME [None]
  - LIVER FUNCTION TEST ABNORMAL [None]
  - THROMBOCYTOPENIA [None]
